FAERS Safety Report 8563929-9 (Version None)
Quarter: 2012Q3

REPORT INFORMATION
  Report Type: 
  Country: None (occurrence: None)
  Receive Date: 20120723
  Receipt Date: 20120629
  Transmission Date: 20120928
  Serious: Yes (Hospitalization)
  Sender: FDA-Public Use
  Company Number: 28101

PATIENT
  Sex: Male
  Weight: 109.7705 kg

DRUGS (28)
  1. NERONTIN [Concomitant]
  2. OXYCONTIN [Concomitant]
  3. MEPHYTON [Concomitant]
  4. ZOFRAN [Concomitant]
  5. ALDACTONE [Concomitant]
  6. BURTRANS PATCH [Concomitant]
  7. XANAX [Concomitant]
  8. HYDROCHLOROTHIAZDE TAB [Concomitant]
  9. NEXIUM [Concomitant]
  10. ALBUTEROL SULFATE [Concomitant]
  11. DIAZEPAM [Concomitant]
  12. OXYCODONE HCL [Concomitant]
  13. PRILOSEC [Concomitant]
  14. XIFAXAN [Concomitant]
  15. ROXICONDE [Concomitant]
  16. SONATA [Concomitant]
  17. EPINEPHRINE [Concomitant]
  18. ADVAIR DISKUS 100/50 [Concomitant]
  19. CORGARD [Concomitant]
  20. KEPPRA [Concomitant]
  21. VALIUM [Concomitant]
  22. BACLOFEN [Concomitant]
  23. LACTULOSE [Concomitant]
  24. VASOTEC [Concomitant]
  25. VENTOLIN HFA AERS [Concomitant]
  26. GLASSIA [Suspect]
     Indication: ALPHA-1 ANTI-TRYPSIN DEFICIENCY
     Dosage: 8400MG, WEEKLY, IV
     Route: 042
     Dates: start: 20110429
  27. ESOMEPRAZOLE [Concomitant]
  28. XANAX [Concomitant]

REACTIONS (14)
  - LIVER INJURY [None]
  - BACK PAIN [None]
  - NECK PAIN [None]
  - FACE INJURY [None]
  - VIRAL INFECTION [None]
  - EYE SWELLING [None]
  - CYSTITIS [None]
  - MUSCULOSKELETAL PAIN [None]
  - DYSPNOEA [None]
  - PAIN [None]
  - VOMITING [None]
  - PAIN IN EXTREMITY [None]
  - NERVE INJURY [None]
  - AMMONIA INCREASED [None]
